FAERS Safety Report 4305320-7 (Version None)
Quarter: 2004Q1

REPORT INFORMATION
  Report Type: 
  Country: None (occurrence: None)
  Receive Date: 20040226
  Receipt Date: 20030509
  Transmission Date: 20041129
  Serious: No
  Sender: FDA-Public Use
  Company Number: US-BRISTOL-MYERS SQUIBB COMPANY-12273306

PATIENT
  Age: 75 Year
  Sex: Female

DRUGS (1)
  1. TAXOL [Suspect]
     Indication: CARCINOMA
     Route: 042
     Dates: start: 20030318, end: 20030318

REACTIONS (1)
  - NEURALGIA [None]
